FAERS Safety Report 9800323 (Version 1)
Quarter: 2014Q1

REPORT INFORMATION
  Report Type: Spontaneous
  Country: US (occurrence: US)
  Receive Date: 20140106
  Receipt Date: 20140106
  Transmission Date: 20141002
  Serious: Yes (Death)
  Sender: FDA-Public Use
  Company Number: US-UCBSA-107922

PATIENT
  Age: 59 Year
  Sex: Male

DRUGS (2)
  1. ACETAMINOPHEN/HYDROCODONE [Suspect]
  2. ALPRAZOLAM [Suspect]

REACTIONS (2)
  - Cardio-respiratory arrest [Fatal]
  - Toxicity to various agents [Fatal]
